FAERS Safety Report 16320299 (Version 3)
Quarter: 2019Q4

REPORT INFORMATION
  Report Type: Spontaneous
  Country: US (occurrence: US)
  Receive Date: 20190516
  Receipt Date: 20191201
  Transmission Date: 20200122
  Serious: Yes (Hospitalization)
  Sender: FDA-Public Use
  Company Number: US-PFIZER INC-2019208565

PATIENT
  Age: 34 Year
  Sex: Female

DRUGS (1)
  1. XELJANZ [Suspect]
     Active Substance: TOFACITINIB CITRATE
     Dosage: 5 MG, UNK
     Dates: start: 201904

REACTIONS (4)
  - Arthralgia [Unknown]
  - Joint stiffness [Unknown]
  - Pneumonia [Unknown]
  - Pulmonary mass [Unknown]
